FAERS Safety Report 16285284 (Version 1)
Quarter: 2019Q2

REPORT INFORMATION
  Report Type: Spontaneous
  Country: US (occurrence: US)
  Receive Date: 20190402
  Receipt Date: 20190402
  Transmission Date: 20190711
  Serious: Yes (Other)
  Sender: FDA-Public Use
  Company Number: None

PATIENT
  Age: 61 Year
  Sex: Male
  Weight: 98 kg

DRUGS (2)
  1. PROTAMINE SULFATE. [Suspect]
     Active Substance: PROTAMINE SULFATE
     Indication: VASCULAR OPERATION
     Route: 042
     Dates: start: 20190315, end: 20190315
  2. PROTAMINE SULFATE. [Suspect]
     Active Substance: PROTAMINE SULFATE
     Indication: CARDIAC OPERATION
     Route: 042
     Dates: start: 20190315, end: 20190315

REACTIONS (5)
  - Pulmonary artery dilatation [None]
  - Cardiac dysfunction [None]
  - Cardiac procedure complication [None]
  - Procedural hypotension [None]
  - Cardiomegaly [None]
